FAERS Safety Report 19683528 (Version 1)
Quarter: 2021Q3

REPORT INFORMATION
  Report Type: Spontaneous
  Country: US (occurrence: US)
  Receive Date: 20210810
  Receipt Date: 20210810
  Transmission Date: 20211014
  Serious: No
  Sender: FDA-Public Use
  Company Number: US-HORIZON THERAPEUTICS-HZN-2021-001412

PATIENT
  Sex: Male

DRUGS (9)
  1. TEPEZZA [Suspect]
     Active Substance: TEPROTUMUMAB-TRBW
     Dosage: 1400 MG,5TH INFUSION
     Route: 065
     Dates: start: 20200721
  2. TEPEZZA [Suspect]
     Active Substance: TEPROTUMUMAB-TRBW
     Dosage: 1400 MG,3ND INFUSION
     Route: 065
     Dates: start: 20200609
  3. TEPEZZA [Suspect]
     Active Substance: TEPROTUMUMAB-TRBW
     Dosage: 1400 MG,6TH INFUSION
     Route: 065
     Dates: start: 20200811
  4. TEPEZZA [Suspect]
     Active Substance: TEPROTUMUMAB-TRBW
     Dosage: 1400 MG,8TH INFUSION
     Route: 065
     Dates: start: 20200922
  5. TEPEZZA [Suspect]
     Active Substance: TEPROTUMUMAB-TRBW
     Dosage: 1340 MG,2ND INFUSION
     Route: 042
     Dates: start: 20200519
  6. METHIMAZOLE. [Suspect]
     Active Substance: METHIMAZOLE
     Indication: HYPERTHYROIDISM
     Dosage: 5 MG, QD
     Route: 065
     Dates: start: 2019
  7. TEPEZZA [Suspect]
     Active Substance: TEPROTUMUMAB-TRBW
     Indication: ENDOCRINE OPHTHALMOPATHY
     Dosage: 680 MG,1ST INFUSION
     Route: 042
     Dates: start: 20200428
  8. TEPEZZA [Suspect]
     Active Substance: TEPROTUMUMAB-TRBW
     Dosage: 1400 MG,7TH INFUSION
     Route: 065
     Dates: start: 20200901
  9. TEPEZZA [Suspect]
     Active Substance: TEPROTUMUMAB-TRBW
     Dosage: 1400 MG,4TH INFUSION
     Route: 065
     Dates: start: 20200630

REACTIONS (3)
  - Diplopia [Not Recovered/Not Resolved]
  - Exophthalmos [Recovered/Resolved]
  - Inflammation [Recovered/Resolved]

NARRATIVE: CASE EVENT DATE: 2019
